FAERS Safety Report 6866770-8 (Version None)
Quarter: 2010Q2

REPORT INFORMATION
  Report Type: 
  Country: None (occurrence: None)
  Receive Date: 20100610
  Receipt Date: 20100226
  Transmission Date: 20101027
  Serious: No
  Sender: FDA-Public Use
  Company Number: 2010SP012848

PATIENT
  Age: 15 Year
  Sex: Male

DRUGS (1)
  1. SAPHRIS [Suspect]
     Indication: DRUG USE FOR UNKNOWN INDICATION
     Dosage: 2.5 MG;HS;

REACTIONS (2)
  - ENURESIS [None]
  - INAPPROPRIATE SCHEDULE OF DRUG ADMINISTRATION [None]
